FAERS Safety Report 7450890-3 (Version None)
Quarter: 2011Q2

REPORT INFORMATION
  Report Type: 
  Country: None (occurrence: None)
  Receive Date: 20110502
  Receipt Date: 20110422
  Transmission Date: 20111010
  Serious: Yes (Death, Hospitalization)
  Sender: FDA-Public Use
  Company Number: US-CELGENEUS-163-21880-11043066

PATIENT
  Age: 73 Year
  Sex: Female

DRUGS (13)
  1. REVLIMID [Suspect]
     Indication: MULTIPLE MYELOMA
     Dosage: 15 MILLIGRAM
     Route: 048
     Dates: start: 20100601, end: 20100801
  2. BISACODYL [Concomitant]
     Route: 065
  3. SCOPOLAMINE [Concomitant]
     Route: 065
  4. DOCUSATE [Concomitant]
     Route: 065
  5. APAP TAB [Concomitant]
     Route: 065
  6. BUPROPION HCL [Concomitant]
     Route: 065
  7. OMEPRAZOLE [Concomitant]
     Route: 065
  8. PREDNISONE [Concomitant]
     Route: 065
  9. BACLOFEN [Concomitant]
     Route: 065
  10. PROMETHAZINE [Concomitant]
     Route: 065
  11. ALBUTEROL [Concomitant]
     Route: 065
  12. DEXAMETHASONE [Concomitant]
     Route: 065
  13. SENNA [Concomitant]
     Route: 065

REACTIONS (3)
  - PNEUMOCYSTIS JIROVECI INFECTION [None]
  - PNEUMONIA [None]
  - DEATH [None]
